FAERS Safety Report 14672118 (Version 1)
Quarter: 2018Q1

REPORT INFORMATION
  Report Type: Report from Study
  Country: BR (occurrence: BR)
  Receive Date: 20180323
  Receipt Date: 20180323
  Transmission Date: 20180509
  Serious: Yes (Other)
  Sender: FDA-Public Use
  Company Number: BR-ROCHE-2092441

PATIENT
  Sex: Female
  Weight: 56 kg

DRUGS (3)
  1. TAXOTERE [Concomitant]
     Active Substance: DOCETAXEL
     Route: 065
     Dates: start: 20150101, end: 20150630
  2. KADCYLA [Suspect]
     Active Substance: ADO-TRASTUZUMAB EMTANSINE
     Indication: BREAST CANCER METASTATIC
     Dosage: 48 CYCLES
     Route: 065
     Dates: start: 20150630, end: 20180315
  3. HERCEPTIN [Concomitant]
     Active Substance: TRASTUZUMAB
     Dosage: INITIAL DOSE 8MG/KG; SUBSEQUENT CYCLES: 6MG/KG
     Route: 065
     Dates: start: 20150101, end: 20150630

REACTIONS (2)
  - Disease progression [Unknown]
  - Drug ineffective [Unknown]
